FAERS Safety Report 8898436 (Version 1)
Quarter: 2012Q4

REPORT INFORMATION
  Report Type: 
  Country: US (occurrence: US)
  Receive Date: 20121108
  Receipt Date: 20121108
  Transmission Date: 20130627
  Serious: No
  Sender: FDA-Public Use
  Company Number: US-AMGEN-USASP2012030332

PATIENT
  Sex: Female
  Weight: 95.24 kg

DRUGS (5)
  1. ENBREL [Suspect]
     Indication: PRODUCT USED FOR UNKNOWN INDICATION
     Dosage: 50 mg, qwk
     Route: 058
  2. ALFALFA                            /01255601/ [Concomitant]
     Dosage: 250 mg, UNK
  3. GARLIC                             /01570501/ [Concomitant]
  4. METHOTREXATE [Concomitant]
     Dosage: 1 g, UNK
  5. ALLEGRA-D                          /01367401/ [Concomitant]

REACTIONS (1)
  - Stomatitis [Unknown]
